FAERS Safety Report 5095292-2 (Version None)
Quarter: 2006Q3

REPORT INFORMATION
  Report Type: 
  Country: None (occurrence: None)
  Receive Date: 20060901
  Receipt Date: 20060823
  Transmission Date: 20061208
  Serious: Yes (Other)
  Sender: FDA-Public Use
  Company Number: JP-JNJFOC-20060806301

PATIENT
  Age: 71 Year
  Sex: Female

DRUGS (6)
  1. FENTANYL CITRATE [Suspect]
     Route: 058
  2. FENTANYL CITRATE [Suspect]
     Route: 058
  3. FENTANYL CITRATE [Suspect]
     Indication: DRUG USE FOR UNKNOWN INDICATION
     Route: 058
  4. FENTANYL [Suspect]
     Route: 062
  5. FENTANYL [Suspect]
     Indication: DRUG USE FOR UNKNOWN INDICATION
     Route: 062
  6. MORPHINE [Suspect]
     Indication: DRUG USE FOR UNKNOWN INDICATION
     Route: 058

REACTIONS (2)
  - APPLICATION SITE ERYTHEMA [None]
  - FLUSHING [None]
